FAERS Safety Report 10254942 (Version 1)
Quarter: 2014Q2

REPORT INFORMATION
  Report Type: Spontaneous
  Country: IT (occurrence: IT)
  Receive Date: 20140624
  Receipt Date: 20140624
  Transmission Date: 20141212
  Serious: Yes (Other)
  Sender: FDA-Public Use
  Company Number: IT-TEVA-488961ISR

PATIENT
  Age: 29 Year
  Sex: Male

DRUGS (1)
  1. NAPROXEN [Suspect]
     Indication: MUSCLE CONTRACTURE
     Route: 048
     Dates: start: 20140516, end: 20140516

REACTIONS (2)
  - Cough [Recovering/Resolving]
  - Urticaria [Recovering/Resolving]
